FAERS Safety Report 5063522-9 (Version None)
Quarter: 2006Q3

REPORT INFORMATION
  Report Type: 
  Country: None (occurrence: None)
  Receive Date: 20060727
  Receipt Date: 20060719
  Transmission Date: 20061208
  Serious: Yes (Other)
  Sender: FDA-Public Use
  Company Number: GB-AVENTIS-200617612GDDC

PATIENT
  Age: 41 Year
  Sex: Female
  Weight: 60 kg

DRUGS (2)
  1. METRONIDAZOLE [Suspect]
     Indication: ABSCESS
     Route: 048
     Dates: start: 20060611, end: 20060613
  2. AMOXICILLIN [Concomitant]
     Indication: ABSCESS
     Route: 048
     Dates: start: 20060611

REACTIONS (3)
  - FATIGUE [None]
  - FREQUENT BOWEL MOVEMENTS [None]
  - JOINT STIFFNESS [None]
